FAERS Safety Report 4431218-X (Version None)
Quarter: 2004Q3

REPORT INFORMATION
  Report Type: 
  Country: None (occurrence: None)
  Receive Date: 20040824
  Receipt Date: 20040817
  Transmission Date: 20050211
  Serious: Yes (Hospitalization)
  Sender: FDA-Public Use
  Company Number: 200418134GDDC

PATIENT
  Age: 59 Year
  Sex: Female

DRUGS (3)
  1. DDAVP [Suspect]
     Indication: BLEEDING TIME PROLONGED
     Dosage: DOSE: 0.4 MCG/KG
     Route: 042
     Dates: start: 20000101, end: 20000101
  2. TAMOXIFEN [Concomitant]
     Route: 048
     Dates: start: 19970101, end: 20000101
  3. QUININE [Concomitant]
     Dosage: DOSE: UNK

REACTIONS (5)
  - ACUTE MYOCARDIAL INFARCTION [None]
  - BRADYCARDIA [None]
  - HAEMOLYTIC URAEMIC SYNDROME [None]
  - RENAL VESSEL DISORDER [None]
  - SWELLING [None]
